FAERS Safety Report 11269824 (Version 1)
Quarter: 2015Q3

REPORT INFORMATION
  Report Type: Spontaneous
  Country: US (occurrence: US)
  Receive Date: 20150714
  Receipt Date: 20150714
  Transmission Date: 20151125
  Serious: Yes (Life-Threatening, Other)
  Sender: FDA-Public Use
  Company Number: US-AMEDRA PHARMACEUTICALS LLC-2015AMD00135

PATIENT
  Age: 23 Year
  Sex: Female

DRUGS (3)
  1. MORPHINE [Suspect]
     Active Substance: MORPHINE
     Indication: CAESAREAN SECTION
     Dosage: UNK, ONCE
     Route: 008
  2. EPINEPHRINE. [Suspect]
     Active Substance: EPINEPHRINE
     Indication: CAESAREAN SECTION
     Dosage: 1:200,000, ONCE
     Route: 008
  3. LIDOCAINE. [Suspect]
     Active Substance: LIDOCAINE
     Indication: CAESAREAN SECTION
     Dosage: UNK, ONCE
     Route: 008

REACTIONS (7)
  - Coma [Recovered/Resolved]
  - Unresponsive to stimuli [Recovered/Resolved]
  - Vomiting [Recovered/Resolved]
  - Quadriplegia [Recovering/Resolving]
  - Brain scan abnormal [None]
  - Brain stem syndrome [Recovered/Resolved]
  - Pupil fixed [Recovered/Resolved]
